FAERS Safety Report 12673933 (Version 2)
Quarter: 2016Q4

REPORT INFORMATION
  Report Type: Spontaneous
  Country: BR (occurrence: BR)
  Receive Date: 20160822
  Receipt Date: 20161201
  Transmission Date: 20170207
  Serious: Yes (Hospitalization)
  Sender: FDA-Public Use
  Company Number: BR-ELI_LILLY_AND_COMPANY-BR201608007695

PATIENT
  Sex: Female
  Weight: 70 kg

DRUGS (11)
  1. GEMZAR [Suspect]
     Active Substance: GEMCITABINE HYDROCHLORIDE
     Indication: PRODUCT USED FOR UNKNOWN INDICATION
     Dosage: 1351.5 MG, CYCLICAL
     Route: 042
     Dates: start: 20160706
  2. DIMORF [Concomitant]
     Active Substance: MORPHINE SULFATE
     Indication: PRODUCT USED FOR UNKNOWN INDICATION
     Dosage: UNK, UNKNOWN
     Route: 065
  3. RIVOTRIL [Concomitant]
     Active Substance: CLONAZEPAM
     Indication: PRODUCT USED FOR UNKNOWN INDICATION
     Dosage: UNK, UNKNOWN
     Route: 065
  4. FAULDCISPLA [Concomitant]
     Active Substance: CISPLATIN
     Indication: PRODUCT USED FOR UNKNOWN INDICATION
     Dosage: 33.79 MG, CYCLICAL
     Route: 042
     Dates: start: 20160706
  5. NOVALGIN [Concomitant]
     Active Substance: METAMIZOLE SODIUM
     Dosage: UNK, UNKNOWN
     Route: 065
  6. NEUTROFER [Concomitant]
     Active Substance: FERROUS BISGLYCINATE
     Dosage: UNK, UNKNOWN
     Route: 065
  7. FAULDCISPLA [Concomitant]
     Active Substance: CISPLATIN
     Dosage: 33.79 MG, CYCLICAL
     Route: 042
  8. LACTULONA [Concomitant]
     Dosage: UNK, UNKNOWN
     Route: 065
  9. MUVINLAX [Concomitant]
     Active Substance: ELECTROLYTES NOS\POLYETHYLENE GLYCOL 3350
     Dosage: UNK, UNKNOWN
     Route: 065
  10. DIGESAN                            /00576701/ [Concomitant]
     Dosage: UNK, UNKNOWN
     Route: 065
  11. VITAMINS WITH MINERALS [Concomitant]
     Active Substance: MINERALS\VITAMINS
     Indication: PRODUCT USED FOR UNKNOWN INDICATION
     Dosage: UNK, UNKNOWN
     Route: 065

REACTIONS (5)
  - Pain [Recovered/Resolved]
  - Pancytopenia [Recovered/Resolved]
  - Nausea [Recovered/Resolved]
  - Vomiting [Recovered/Resolved]
  - Transfusion reaction [Unknown]
